FAERS Safety Report 16149638 (Version 1)
Quarter: 2019Q2

REPORT INFORMATION
  Report Type: Spontaneous
  Country: US (occurrence: US)
  Receive Date: 20190402
  Receipt Date: 20190402
  Transmission Date: 20190711
  Serious: Yes (Other)
  Sender: FDA-Public Use
  Company Number: US-LUNDBECK-DKLU2062563

PATIENT
  Sex: Male

DRUGS (6)
  1. NORTHERA [Suspect]
     Active Substance: DROXIDOPA
     Route: 065
  2. NORTHERA [Suspect]
     Active Substance: DROXIDOPA
     Route: 065
  3. NORTHERA [Suspect]
     Active Substance: DROXIDOPA
     Route: 065
  4. NORTHERA [Suspect]
     Active Substance: DROXIDOPA
     Route: 065
  5. NORTHERA [Suspect]
     Active Substance: DROXIDOPA
     Indication: ORTHOSTATIC HYPOTENSION
     Route: 065
  6. NORTHERA [Suspect]
     Active Substance: DROXIDOPA
     Route: 065

REACTIONS (4)
  - Blood pressure fluctuation [Unknown]
  - Fatigue [Unknown]
  - Hypertension [Unknown]
  - Delirium [Unknown]
